FAERS Safety Report 12972022 (Version 2)
Quarter: 2016Q4

REPORT INFORMATION
  Report Type: Spontaneous
  Country: US (occurrence: US)
  Receive Date: 20161124
  Receipt Date: 20161128
  Transmission Date: 20170207
  Serious: No
  Sender: FDA-Public Use
  Company Number: US-HORIZON-RAV-0249-2016

PATIENT
  Age: 13 Year
  Sex: Male

DRUGS (2)
  1. ANAMIX JR [Concomitant]
  2. RAVICTI [Suspect]
     Active Substance: GLYCEROL PHENYLBUTYRATE
     Indication: ARGINASE DEFICIENCY
     Dosage: 2 ML TID
     Dates: start: 20140312

REACTIONS (2)
  - Decreased appetite [Unknown]
  - Learning disability [Unknown]
